FAERS Safety Report 5443308-3 (Version None)
Quarter: 2007Q3

REPORT INFORMATION
  Report Type: 
  Country: None (occurrence: None)
  Receive Date: 20070831
  Receipt Date: 20070831
  Transmission Date: 20080115
  Serious: Yes (Other)
  Sender: FDA-Public Use
  Company Number: None

PATIENT
  Sex: Female

DRUGS (1)
  1. COPPERTONE CONTINUOUS SPRAY SPF 30 (HOMOSALATE/OCTINOXATE/OCTISALATE;O [Suspect]
     Indication: PROPHYLAXIS AGAINST SOLAR RADIATION
     Dosage: TOP
     Route: 061

REACTIONS (1)
  - BURNS THIRD DEGREE [None]
